FAERS Safety Report 18840447 (Version 1)
Quarter: 2021Q1

REPORT INFORMATION
  Report Type: Report from Study
  Country: None (occurrence: US)
  Receive Date: 20210203
  Receipt Date: 20210203
  Transmission Date: 20210419
  Serious: Yes (Other)
  Sender: FDA-Public Use
  Company Number: US-ABBVIE-21K-163-3751919-00

PATIENT
  Sex: Female

DRUGS (1)
  1. HUMIRA [Suspect]
     Active Substance: ADALIMUMAB
     Indication: RHEUMATOID ARTHRITIS
     Dosage: CITRATE FREE
     Route: 058

REACTIONS (8)
  - Neuralgia [Unknown]
  - Spinal nerve stimulator implantation [Recovering/Resolving]
  - Eye inflammation [Unknown]
  - Complex regional pain syndrome [Recovering/Resolving]
  - Cataract [Recovering/Resolving]
  - Nerve injury [Unknown]
  - Ankle operation [Recovering/Resolving]
  - Foot operation [Recovering/Resolving]
